FAERS Safety Report 25794735 (Version 1)
Quarter: 2025Q3

REPORT INFORMATION
  Report Type: Report from Study
  Country: US (occurrence: US)
  Receive Date: 20250912
  Receipt Date: 20250912
  Transmission Date: 20251021
  Serious: Yes (Hospitalization)
  Sender: ROCHE
  Company Number: US-ROCHE-10000385075

PATIENT
  Age: 38 Year
  Sex: Male

DRUGS (2)
  1. PULMOZYME [Suspect]
     Active Substance: DORNASE ALFA
     Indication: Cystic fibrosis
     Dosage: INHALE THE CONTENTS OF ONE VIAL VIA NEBULIZATION ONCE DAILY AS INSTRUCTED
     Route: 065
  2. PULMOZYME [Suspect]
     Active Substance: DORNASE ALFA
     Indication: Autism spectrum disorder

REACTIONS (2)
  - Pneumonia [Unknown]
  - Hypertension [Unknown]

NARRATIVE: CASE EVENT DATE: 20250801
